FAERS Safety Report 9774142 (Version 2)
Quarter: 2013Q4

REPORT INFORMATION
  Report Type: Spontaneous
  Country: IT (occurrence: IT)
  Receive Date: 20131220
  Receipt Date: 20131231
  Transmission Date: 20140711
  Serious: Yes (Other)
  Sender: FDA-Public Use
  Company Number: IT-RANBAXY-2013RR-76363

PATIENT
  Age: 40 Year
  Sex: Female

DRUGS (1)
  1. AMOXICILLIN/CLAVULANIC ACID [Suspect]
     Indication: PRODUCT USED FOR UNKNOWN INDICATION
     Dosage: 1 G COMPLETE
     Route: 048
     Dates: start: 20131128, end: 20131128

REACTIONS (3)
  - Erythema [Recovering/Resolving]
  - Presyncope [Recovering/Resolving]
  - Pruritus [Recovering/Resolving]
